FAERS Safety Report 22612047 (Version 1)
Quarter: 2023Q2

REPORT INFORMATION
  Report Type: Spontaneous
  Country: US (occurrence: US)
  Receive Date: 20230617
  Receipt Date: 20230617
  Transmission Date: 20230722
  Serious: Yes (Hospitalization, Other)
  Sender: FDA-Public Use
  Company Number: US-MLMSERVICE-20230601-4322439-1

PATIENT
  Age: 74 Year
  Sex: Female

DRUGS (2)
  1. FLECAINIDE [Suspect]
     Active Substance: FLECAINIDE
     Indication: Atrial fibrillation
     Dosage: 150 MILLIGRAM, MORE THAN 2 DECADES
     Route: 065
  2. METOPROLOL SUCCINATE [Concomitant]
     Active Substance: METOPROLOL SUCCINATE
     Indication: Atrial fibrillation
     Dosage: 25 MILLIGRAM, ONCE A DAY
     Route: 065

REACTIONS (4)
  - Atrioventricular block first degree [Recovered/Resolved]
  - Tachycardia [Recovered/Resolved]
  - Ventricular tachycardia [Recovered/Resolved]
  - Toxicity to various agents [Recovered/Resolved]
